FAERS Safety Report 24382862 (Version 1)
Quarter: 2024Q3

REPORT INFORMATION
  Report Type: Spontaneous
  Country: US (occurrence: None)
  Receive Date: 20240930
  Receipt Date: 20240930
  Transmission Date: 20241017
  Serious: Yes (Other)
  Sender: Public
  Company Number: None

PATIENT
  Age: 63 Year
  Sex: Male

DRUGS (11)
  1. HUMIRA [Suspect]
     Active Substance: ADALIMUMAB
     Indication: Psoriasis
     Dosage: FREQUENCY : EVERY OTHER WEEK;?
     Route: 058
     Dates: start: 20240801
  2. ASPIRIN LOW TAB 81MG EC [Concomitant]
  3. ATORVASTATIN [Concomitant]
     Active Substance: ATORVASTATIN
  4. BENAZEPRIL TAB 40MG [Concomitant]
  5. CETIRIZINE HCL [Concomitant]
     Active Substance: CETIRIZINE HYDROCHLORIDE
  6. DULOXETINE CAP 30MG [Concomitant]
  7. GABAPENTIN TAB 600MG [Concomitant]
  8. HYDROCHLOROT TAB 25MG [Concomitant]
  9. LEVOTHYROXIN TAB 137MCG [Concomitant]
  10. METFORMIN TAB 1000MG [Concomitant]
  11. NADOLOL TAB 20MG [Concomitant]

REACTIONS (1)
  - Cerebrovascular accident [None]

NARRATIVE: CASE EVENT DATE: 20240918
